FAERS Safety Report 5071366-7 (Version None)
Quarter: 2006Q3

REPORT INFORMATION
  Report Type: 
  Country: None (occurrence: None)
  Receive Date: 20060804
  Receipt Date: 20051202
  Transmission Date: 20061208
  Serious: No
  Sender: FDA-Public Use
  Company Number: US-AMGEN-US159939

PATIENT
  Sex: Female
  Weight: 71.7 kg

DRUGS (11)
  1. ARANESP [Suspect]
     Indication: ANAEMIA
     Dates: start: 20050718, end: 20051121
  2. GLUCOPHAGE [Concomitant]
  3. GLUCOTROL [Concomitant]
  4. ACCUPRIL [Concomitant]
  5. LEVOXYL [Concomitant]
  6. AVANDIA [Concomitant]
  7. OSCAL [Concomitant]
  8. QUININE SULFATE [Concomitant]
  9. ASPIRIN [Concomitant]
  10. TRIAZOLAM [Concomitant]
  11. MAGNESIUM SULFATE [Concomitant]

REACTIONS (2)
  - LEUKOPENIA [None]
  - THERAPEUTIC RESPONSE DECREASED [None]
